FAERS Safety Report 11780131 (Version 1)
Quarter: 2015Q4

REPORT INFORMATION
  Report Type: Spontaneous
  Country: US (occurrence: US)
  Receive Date: 20151126
  Receipt Date: 20151126
  Transmission Date: 20160305
  Serious: No
  Sender: FDA-Public Use
  Company Number: US-JNJFOC-20151022027

PATIENT
  Age: 86 Year
  Sex: Male
  Weight: 68.04 kg

DRUGS (6)
  1. TYLENOL 8 HR ARTHRITIS PAIN [Suspect]
     Active Substance: ACETAMINOPHEN
     Route: 048
  2. LIPITOR [Concomitant]
     Active Substance: ATORVASTATIN CALCIUM
     Indication: BLOOD CHOLESTEROL INCREASED
     Dosage: YEARS
     Route: 065
  3. VITAMIN C [Concomitant]
     Active Substance: ASCORBIC ACID
     Indication: NUTRITIONAL SUPPLEMENTATION
     Dosage: YEARS
     Route: 065
  4. TYLENOL 8 HR ARTHRITIS PAIN [Suspect]
     Active Substance: ACETAMINOPHEN
     Indication: ARTHRITIS
     Route: 048
     Dates: start: 20151013, end: 20151025
  5. MULTIVITAMINS [Concomitant]
     Active Substance: VITAMINS
     Indication: NUTRITIONAL SUPPLEMENTATION
     Route: 065
  6. TOCOPHEROL [Concomitant]
     Active Substance: TOCOPHEROL
     Indication: NUTRITIONAL SUPPLEMENTATION
     Route: 065

REACTIONS (4)
  - Incorrect dose administered [Unknown]
  - Product packaging issue [Unknown]
  - Inappropriate schedule of drug administration [Unknown]
  - Abdominal discomfort [Unknown]
